FAERS Safety Report 9510286 (Version 1)
Quarter: 2013Q3

REPORT INFORMATION
  Report Type: Spontaneous
  Country: US (occurrence: US)
  Receive Date: 20130909
  Receipt Date: 20130909
  Transmission Date: 20140515
  Serious: No
  Sender: FDA-Public Use
  Company Number: US-BRISTOL-MYERS SQUIBB COMPANY-17473752

PATIENT
  Age: 9 Year
  Sex: Female
  Weight: 33.11 kg

DRUGS (2)
  1. ABILIFY [Suspect]
     Indication: AFFECTIVE DISORDER
     Route: 048
     Dates: start: 201209
  2. GUANFACINE [Concomitant]

REACTIONS (2)
  - Increased appetite [Unknown]
  - Drug dose omission [Unknown]
